FAERS Safety Report 17630819 (Version 4)
Quarter: 2022Q2

REPORT INFORMATION
  Report Type: Report from Study
  Country: US (occurrence: US)
  Receive Date: 20200406
  Receipt Date: 20220620
  Transmission Date: 20220721
  Serious: No
  Sender: FDA-Public Use
  Company Number: US-KYOWAKIRIN-2020BKK005056

PATIENT

DRUGS (1)
  1. CRYSVITA [Suspect]
     Active Substance: BUROSUMAB-TWZA
     Indication: Hereditary hypophosphataemic rickets
     Dosage: 70 MG, EVERY 14 DAYS
     Route: 065
     Dates: start: 20200116

REACTIONS (7)
  - Restless arm syndrome [Unknown]
  - Pruritus [Recovered/Resolved]
  - Arthralgia [Unknown]
  - Fatigue [Unknown]
  - Pain [Unknown]
  - Restless legs syndrome [Recovered/Resolved]
  - Inappropriate schedule of product administration [Unknown]
